FAERS Safety Report 23941298 (Version 3)
Quarter: 2024Q3

REPORT INFORMATION
  Report Type: Spontaneous
  Country: GR (occurrence: GR)
  Receive Date: 20240605
  Receipt Date: 20240919
  Transmission Date: 20241016
  Serious: No
  Sender: PFIZER
  Company Number: GR-PFIZER INC-PV202400072479

PATIENT
  Age: 5 Year
  Sex: Male
  Weight: 41 kg

DRUGS (1)
  1. GENOTROPIN [Suspect]
     Active Substance: SOMATROPIN
     Indication: Growth hormone deficiency
     Dosage: 12 MG, WEEKLY
     Route: 058

REACTIONS (1)
  - Expired device used [Unknown]
